FAERS Safety Report 8805950 (Version 1)
Quarter: 2012Q4

REPORT INFORMATION
  Report Type: Spontaneous
  Country: AU (occurrence: None)
  Receive Date: 20120918
  Receipt Date: 20120918
  Transmission Date: 20130627
  Serious: Yes (Life-Threatening)
  Sender: FDA-Public Use
  Company Number: DSA_59552_2012

PATIENT

DRUGS (6)
  1. METRONIDAZOLE (METRONIDAZOLE) [Suspect]
     Indication: PRODUCT USED FOR UNKNOWN INDICATION
     Dosage: (DF)
     Dates: start: 20120529, end: 20120610
  2. CEFEPIME HYDROCHLORIDE [Suspect]
     Indication: PRODUCT USED FOR UNKNOWN INDICATION
     Dosage: (DF)
     Dates: start: 20120530, end: 20120610
  3. CIPROFLOXACIN (CIPROFLOXACIN) [Suspect]
     Indication: PRODUCT USED FOR UNKNOWN INDICATION
     Dosage: daily Intravenous (not otherwise specified))
     Route: 042
     Dates: start: 20120520, end: 20120529
  4. LINCOMYCIN HYDROCHLORIDE [Suspect]
     Indication: PRODUCT USED FOR UNKNOWN INDICATION
     Dosage: (df)
     Dates: start: 20120521, end: 20120610
  5. VANCOMYCIN HYDROCHLORIDE [Suspect]
     Indication: PRODUCT USED FOR UNKNOWN INDICATION
     Dosage: (DF)
     Dates: start: 20120520, end: 20120527
  6. FRUSEMIDE /00032601/ [Concomitant]

REACTIONS (4)
  - Multi-organ failure [None]
  - Toxic epidermal necrolysis [None]
  - Blood pressure decreased [None]
  - Continuous haemodiafiltration [None]
